FAERS Safety Report 16165954 (Version 1)
Quarter: 2019Q2

REPORT INFORMATION
  Report Type: Report from Study
  Country: US (occurrence: US)
  Receive Date: 20190406
  Receipt Date: 20190406
  Transmission Date: 20190711
  Serious: Yes (Other)
  Sender: FDA-Public Use
  Company Number: US-ROCHE-2281664

PATIENT
  Age: 44 Year
  Sex: Female
  Weight: 104.87 kg

DRUGS (1)
  1. OCREVUS [Suspect]
     Active Substance: OCRELIZUMAB
     Indication: RELAPSING-REMITTING MULTIPLE SCLEROSIS
     Dosage: ONGOING: NO?SUBSEQUENT DOSE ON  30/APR/2017, 16/OCT/2017, 18/APR/2018 AND 18/OCT2018.
     Route: 065
     Dates: start: 20170430, end: 201810

REACTIONS (1)
  - Breast cancer [Not Recovered/Not Resolved]

NARRATIVE: CASE EVENT DATE: 20181228
